FAERS Safety Report 21756184 (Version 11)
Quarter: 2025Q3

REPORT INFORMATION
  Report Type: Report from Study
  Country: US (occurrence: US)
  Receive Date: 20221220
  Receipt Date: 20250909
  Transmission Date: 20251021
  Serious: Yes (Hospitalization)
  Sender: TAKEDA
  Company Number: US-TAKEDA-2022TUS076946

PATIENT
  Age: 54 Year
  Sex: Female

DRUGS (9)
  1. TEDUGLUTIDE [Suspect]
     Active Substance: TEDUGLUTIDE
     Indication: Short-bowel syndrome
     Dosage: 0.33 MILLILITER, QD
     Dates: start: 20220913
  2. TEDUGLUTIDE [Suspect]
     Active Substance: TEDUGLUTIDE
     Dosage: 0.33 MILLILITER, QD
     Dates: start: 20220918
  3. TEDUGLUTIDE [Suspect]
     Active Substance: TEDUGLUTIDE
     Dosage: 0.33 MILLIGRAM, QD
     Dates: start: 20220920
  4. TEDUGLUTIDE [Suspect]
     Active Substance: TEDUGLUTIDE
     Dosage: 0.33 MILLIGRAM, QD
     Dates: start: 20220922
  5. TEDUGLUTIDE [Suspect]
     Active Substance: TEDUGLUTIDE
     Dosage: 0.33 MILLILITER, QD
     Dates: start: 202209
  6. TEDUGLUTIDE [Suspect]
     Active Substance: TEDUGLUTIDE
     Dosage: UNK UNK, QD
  7. TEDUGLUTIDE [Suspect]
     Active Substance: TEDUGLUTIDE
     Dosage: 3.3 MILLIGRAM, QD
  8. TEDUGLUTIDE [Suspect]
     Active Substance: TEDUGLUTIDE
     Dosage: 0.33 MILLILITER, QD
  9. TEDUGLUTIDE [Suspect]
     Active Substance: TEDUGLUTIDE
     Dosage: 0.31 MILLILITER, QOD

REACTIONS (15)
  - Constipation [Not Recovered/Not Resolved]
  - Obstruction [Recovered/Resolved]
  - Adhesion [Unknown]
  - Abscess limb [Unknown]
  - Abdominal pain upper [Unknown]
  - Abdominal pain [Unknown]
  - Weight decreased [Unknown]
  - Fall [Unknown]
  - Abdominal hernia [Unknown]
  - Umbilical discharge [Unknown]
  - Procedural pain [Unknown]
  - Diarrhoea [Unknown]
  - Vitamin D decreased [Unknown]
  - Bowel movement irregularity [Unknown]
  - Vomiting [Unknown]

NARRATIVE: CASE EVENT DATE: 20221017
